FAERS Safety Report 5858474-5 (Version None)
Quarter: 2008Q3

REPORT INFORMATION
  Report Type: 
  Country: None (occurrence: None)
  Receive Date: 20080822
  Receipt Date: 20080820
  Transmission Date: 20090109
  Serious: Yes (Other)
  Sender: FDA-Public Use
  Company Number: SP02038

PATIENT
  Age: 65 Year
  Sex: Male

DRUGS (3)
  1. VISICOL [Suspect]
     Indication: BOWEL PREPARATION
     Dosage: 50 GM, ORAL
     Route: 048
     Dates: start: 20080806, end: 20080806
  2. FLUNITRAZEPAM [Concomitant]
  3. BUTORPHANOL TARTRATE [Concomitant]

REACTIONS (2)
  - DEPRESSED LEVEL OF CONSCIOUSNESS [None]
  - VOMITING [None]
